FAERS Safety Report 8030679-7 (Version None)
Quarter: 2012Q1

REPORT INFORMATION
  Report Type: 
  Country: None (occurrence: None)
  Receive Date: 20120109
  Receipt Date: 20120103
  Transmission Date: 20120608
  Serious: Yes (Other)
  Sender: FDA-Public Use
  Company Number: PHEH2011US08238

PATIENT
  Age: 17 Year
  Sex: Male
  Weight: 50.34 kg

DRUGS (2)
  1. TOBI [Suspect]
     Indication: CYSTIC FIBROSIS
     Dosage: 300 MG, BID (28 DAYS ON AND 28 DAYS OFF)
     Dates: start: 20100401
  2. PULMOZYME [Concomitant]

REACTIONS (2)
  - SINUSITIS [None]
  - LUNG INFECTION [None]
